FAERS Safety Report 8840728 (Version 1)
Quarter: 2012Q4

REPORT INFORMATION
  Report Type: 
  Country: US (occurrence: US)
  Receive Date: 20121015
  Receipt Date: 20121015
  Transmission Date: 20130627
  Serious: Yes (Death, Life-Threatening)
  Sender: FDA-Public Use
  Company Number: US-ROCHE-GNE216400

PATIENT
  Age: 14 Year
  Sex: Male
  Weight: 38.24 kg

DRUGS (3)
  1. NUTROPIN [Suspect]
     Indication: GROWTH HORMONE DEFICIENCY
     Dosage: 1.6 mg, qd
     Route: 058
     Dates: start: 20001114, end: 20050529
  2. NUTROPIN [Suspect]
     Indication: PRODUCT USED FOR UNKNOWN INDICATION
  3. CORTEF [Concomitant]
     Indication: PRODUCT USED FOR UNKNOWN INDICATION
     Dosage: 5 mg, bid
     Route: 048
     Dates: start: 20010419

REACTIONS (2)
  - Subarachnoid haemorrhage [Fatal]
  - Malaise [Unknown]
